FAERS Safety Report 8378002-2 (Version None)
Quarter: 2012Q2

REPORT INFORMATION
  Report Type: 
  Country: None (occurrence: None)
  Receive Date: 20120522
  Receipt Date: 20120518
  Transmission Date: 20120825
  Serious: Yes (Hospitalization, Other)
  Sender: FDA-Public Use
  Company Number: CA-ABBOTT-11P-028-0871851-00

PATIENT
  Sex: Female
  Weight: 75 kg

DRUGS (3)
  1. HUMIRA [Suspect]
     Indication: CROHN'S DISEASE
     Dosage: LAST HUMIRA DOSE 25 OCT 2011
     Route: 058
     Dates: start: 20100721, end: 20111107
  2. ENTOCORT EC [Concomitant]
     Indication: PRODUCT USED FOR UNKNOWN INDICATION
     Dates: start: 20110901
  3. ANTIBIOTICS [Suspect]
     Indication: ABSCESS INTESTINAL

REACTIONS (11)
  - ENTEROCUTANEOUS FISTULA [None]
  - INTESTINAL FISTULA [None]
  - CROHN'S DISEASE [None]
  - ABDOMINAL PAIN [None]
  - VOMITING [None]
  - HYDRONEPHROSIS [None]
  - ABSCESS INTESTINAL [None]
  - CHILLS [None]
  - NAUSEA [None]
  - DIARRHOEA [None]
  - PYREXIA [None]
